FAERS Safety Report 8009439-9 (Version None)
Quarter: 2011Q4

REPORT INFORMATION
  Report Type: 
  Country: None (occurrence: None)
  Receive Date: 20111227
  Receipt Date: 20111222
  Transmission Date: 20120403
  Serious: Yes (Hospitalization)
  Sender: FDA-Public Use
  Company Number: DE-SANOFI-AVENTIS-2011SA083982

PATIENT
  Age: 73 Year
  Sex: Male

DRUGS (1)
  1. OXALIPLATIN [Suspect]
     Route: 042
     Dates: start: 20110120, end: 20110120

REACTIONS (4)
  - TACHYCARDIA [None]
  - CHILLS [None]
  - HYPERTENSIVE CRISIS [None]
  - DYSPNOEA [None]
